FAERS Safety Report 8574081-8 (Version None)
Quarter: 2012Q3

REPORT INFORMATION
  Report Type: 
  Country: None (occurrence: None)
  Receive Date: 20120806
  Receipt Date: 20120730
  Transmission Date: 20120928
  Serious: Yes (Other)
  Sender: FDA-Public Use
  Company Number: PHEH2012US014517

PATIENT
  Sex: Female

DRUGS (1)
  1. GILENYA [Suspect]
     Indication: MULTIPLE SCLEROSIS
     Dosage: 0.5 MG, QD
     Route: 048
     Dates: start: 20120614

REACTIONS (8)
  - ABDOMINAL DISTENSION [None]
  - FLATULENCE [None]
  - MUSCULOSKELETAL PAIN [None]
  - HEPATIC NEOPLASM MALIGNANT [None]
  - BLOODY DISCHARGE [None]
  - RECTAL DISCHARGE [None]
  - ABDOMINAL TENDERNESS [None]
  - BACK PAIN [None]
